FAERS Safety Report 5474670-3 (Version None)
Quarter: 2007Q4

REPORT INFORMATION
  Report Type: 
  Country: None (occurrence: None)
  Receive Date: 20071002
  Receipt Date: 20070926
  Transmission Date: 20080405
  Serious: Yes (Other)
  Sender: FDA-Public Use
  Company Number: US-ASTRAZENECA-2007UW22620

PATIENT
  Age: 82 Year
  Sex: Male
  Weight: 68 kg

DRUGS (3)
  1. PRILOSEC [Suspect]
     Indication: GASTRIC DISORDER
     Route: 048
  2. PREDNISONE [Concomitant]
  3. PREVACID [Concomitant]

REACTIONS (5)
  - ANOREXIA [None]
  - BLOOD CREATININE DECREASED [None]
  - LETHARGY [None]
  - MALAISE [None]
  - NEPHROPATHY TOXIC [None]
